FAERS Safety Report 25014492 (Version 1)
Quarter: 2025Q1

REPORT INFORMATION
  Report Type: Spontaneous
  Country: GB (occurrence: GB)
  Receive Date: 20250226
  Receipt Date: 20250226
  Transmission Date: 20250409
  Serious: Yes (Other)
  Sender: TEVA
  Company Number: GB-MHRA-TPP1227391C11034674YC1739903024718

PATIENT
  Age: 78 Year
  Sex: Female
  Weight: 48 kg

DRUGS (7)
  1. ALENDRONIC ACID [Suspect]
     Active Substance: ALENDRONIC ACID
     Indication: Ill-defined disorder
     Route: 065
  2. HYLO NIGHT [Concomitant]
     Indication: Ill-defined disorder
     Route: 065
     Dates: start: 20241203
  3. HYLO-TEAR [Concomitant]
     Indication: Ill-defined disorder
     Route: 065
     Dates: start: 20180102, end: 20241203
  4. CALCIUM CARBONATE [Concomitant]
     Active Substance: CALCIUM CARBONATE
     Indication: Ill-defined disorder
     Dosage: TAKE 1 TWICE DAILY
     Route: 065
     Dates: start: 20230413
  5. CLINITAS [Concomitant]
     Indication: Ill-defined disorder
     Route: 065
     Dates: start: 20241203
  6. LANSOPRAZOLE [Concomitant]
     Active Substance: LANSOPRAZOLE
     Indication: Ill-defined disorder
     Dosage: TAKE ONE ONCE DAILY WHILST ON CL;OPIDOGREL OR A...
     Route: 065
     Dates: start: 20241231, end: 20250128
  7. CLOPIDOGREL [Concomitant]
     Active Substance: CLOPIDOGREL BISULFATE
     Indication: Ill-defined disorder
     Dosage: TAKE ONE ONCE DAILY
     Route: 065
     Dates: start: 20241209

REACTIONS (1)
  - Swelling face [Recovered/Resolved]
